FAERS Safety Report 6998089-9 (Version None)
Quarter: 2010Q3

REPORT INFORMATION
  Report Type: 
  Country: None (occurrence: None)
  Receive Date: 20100920
  Receipt Date: 20100616
  Transmission Date: 20110219
  Serious: No
  Sender: FDA-Public Use
  Company Number: US-ASTRAZENECA-2010SE28143

PATIENT
  Age: 579 Month
  Sex: Female

DRUGS (6)
  1. SEROQUEL [Suspect]
     Route: 048
     Dates: start: 20010906
  2. PAXIL [Concomitant]
     Dates: start: 20010320
  3. KLONOPIN [Concomitant]
     Dates: start: 20010322
  4. TRAZODONE HCL [Concomitant]
     Dates: start: 20010412
  5. QUINAPRIL [Concomitant]
  6. ZETIA [Concomitant]
     Dates: start: 20040101

REACTIONS (10)
  - ADHESION [None]
  - BLOOD PRESSURE INCREASED [None]
  - CORONARY ARTERY DISEASE [None]
  - DYSLIPIDAEMIA [None]
  - GLAUCOMA [None]
  - LIVER DISORDER [None]
  - LIVER FUNCTION TEST ABNORMAL [None]
  - OEDEMA [None]
  - TYPE 2 DIABETES MELLITUS [None]
  - UTERINE DISORDER [None]
